FAERS Safety Report 16830864 (Version 1)
Quarter: 2019Q3

REPORT INFORMATION
  Report Type: Spontaneous
  Country: DE (occurrence: DE)
  Receive Date: 20190920
  Receipt Date: 20190920
  Transmission Date: 20191005
  Serious: Yes (Life-Threatening, Hospitalization, Other)
  Sender: FDA-Public Use
  Company Number: DE-ACCORD-155093

PATIENT
  Age: 43 Year
  Sex: Female

DRUGS (4)
  1. BUDESONIDE/FORMOTEROL [Concomitant]
     Indication: ASTHMA
     Dosage: FIXED-DOSE COMBINATION
     Route: 055
  2. TIOTROPIUM/TIOTROPIUM BROMIDE [Concomitant]
     Indication: ASTHMA
     Route: 055
  3. QUETIAPINE. [Suspect]
     Active Substance: QUETIAPINE
  4. IBUPROFEN. [Suspect]
     Active Substance: IBUPROFEN
     Dosage: UNKNOWN DOSES

REACTIONS (7)
  - Suicide attempt [Unknown]
  - Asthma [Recovered/Resolved]
  - Status asthmaticus [Recovered/Resolved]
  - Respiratory acidosis [Recovered/Resolved]
  - Lung infiltration [Recovered/Resolved]
  - Toxicity to various agents [Unknown]
  - Hypercapnia [Recovered/Resolved]
